FAERS Safety Report 16788650 (Version 4)
Quarter: 2019Q4

REPORT INFORMATION
  Report Type: Report from Study
  Country: CA (occurrence: CA)
  Receive Date: 20190910
  Receipt Date: 20191031
  Transmission Date: 20200122
  Serious: Yes (Hospitalization)
  Sender: FDA-Public Use
  Company Number: CA-ROCHE-2334193

PATIENT
  Age: 53 Year
  Sex: Male
  Weight: 78 kg

DRUGS (20)
  1. CITALOPRAM HYDROBROMIDE. [Concomitant]
     Active Substance: CITALOPRAM HYDROBROMIDE
     Indication: DEPRESSION
     Route: 065
     Dates: start: 20171202, end: 20180814
  2. CITALOPRAM HYDROBROMIDE. [Concomitant]
     Active Substance: CITALOPRAM HYDROBROMIDE
     Route: 065
     Dates: start: 20181109, end: 20181115
  3. METOCLOPRAMIDE. [Concomitant]
     Active Substance: METOCLOPRAMIDE
     Indication: VERTIGO
     Route: 065
     Dates: start: 201103, end: 20120721
  4. OCRELIZUMAB. [Suspect]
     Active Substance: OCRELIZUMAB
     Dosage: SUBSEQUENT DOSES ON 24/NOV/2017.
     Route: 042
     Dates: start: 20170623
  5. OCRELIZUMAB. [Suspect]
     Active Substance: OCRELIZUMAB
     Dosage: SUBSEQUENT DOSES ON04/APR/2019
     Route: 042
     Dates: start: 20181025
  6. BETAHISTINE [Concomitant]
     Active Substance: BETAHISTINE
     Indication: VERTIGO
     Route: 065
     Dates: start: 20150116, end: 20150118
  7. METHYLPREDNISOLONE. [Concomitant]
     Active Substance: METHYLPREDNISOLONE
     Indication: PREMEDICATION
     Dosage: SUBSEQUENT DOSES ON 28/MAY/2012, 31/OCT/2012, 16/NOV/2012, 26/APR/2013, 10/MAY/2013, 11/OCT/2013, 25
     Route: 065
     Dates: start: 20120516
  8. CITALOPRAM HYDROBROMIDE. [Concomitant]
     Active Substance: CITALOPRAM HYDROBROMIDE
     Route: 065
     Dates: start: 20181116
  9. OCRELIZUMAB. [Suspect]
     Active Substance: OCRELIZUMAB
     Route: 042
     Dates: start: 20170120, end: 20170120
  10. METOCLOPRAMIDE. [Concomitant]
     Active Substance: METOCLOPRAMIDE
     Route: 065
     Dates: start: 20121114
  11. OCRELIZUMAB. [Suspect]
     Active Substance: OCRELIZUMAB
     Route: 042
     Dates: start: 20180510
  12. BENADRYL [Concomitant]
     Active Substance: DIPHENHYDRAMINE HYDROCHLORIDE
     Indication: PREMEDICATION
     Route: 065
     Dates: start: 20180510
  13. BETAHISTINE [Concomitant]
     Active Substance: BETAHISTINE
     Route: 065
     Dates: start: 20160218, end: 20160218
  14. CITALOPRAM HYDROBROMIDE. [Concomitant]
     Active Substance: CITALOPRAM HYDROBROMIDE
     Route: 065
     Dates: start: 20171125, end: 20171201
  15. OCRELIZUMAB. [Suspect]
     Active Substance: OCRELIZUMAB
     Indication: PRIMARY PROGRESSIVE MULTIPLE SCLEROSIS
     Dosage: TWO IV INFUSIONS IN EACH TREATMENT CYCLE OF DOUBLE BLIND TREATMENT PERIOD;?SUBSEQUENT DOSES ON 28/MA
     Route: 042
     Dates: start: 20120516, end: 20160121
  16. ACETAMINOPHEN. [Concomitant]
     Active Substance: ACETAMINOPHEN
     Indication: PREMEDICATION
     Dosage: SUBSEQUENT DOSES ON 28/MAY/2012, 31/OCT/2012, 16/NOV/2012, 26/APR/2013, 10/MAY/2013, 11/OCT/2013, 25
     Route: 065
     Dates: start: 20120516
  17. BETAHISTINE [Concomitant]
     Active Substance: BETAHISTINE
     Indication: ASTHENIA
     Route: 065
     Dates: start: 20150115, end: 20150115
  18. OCRELIZUMAB. [Suspect]
     Active Substance: OCRELIZUMAB
     Indication: PRIMARY PROGRESSIVE MULTIPLE SCLEROSIS
     Dosage: TWO IV INFUSIONS OF OCRELIZUMAB 300 MG FOR CYCLE 1 AND SINGLE IV INFUSION OF OCRELIZUMAB 600 MG FOR
     Route: 042
     Dates: start: 20160122
  19. DIPHENHYDRAMINE. [Concomitant]
     Active Substance: DIPHENHYDRAMINE
     Indication: PREMEDICATION
     Dosage: SUBSEQUENT DOSES ON 28/MAY/2012, 31/OCT/2012, 16/NOV/2012, 26/APR/2013, 10/MAY/2013, 11/OCT/2013, 25
     Route: 065
     Dates: start: 20120516
  20. BETAHISTINE [Concomitant]
     Active Substance: BETAHISTINE
     Route: 065
     Dates: start: 20170531

REACTIONS (1)
  - Pneumonia [Recovered/Resolved]

NARRATIVE: CASE EVENT DATE: 20190529
